FAERS Safety Report 10102293 (Version 2)
Quarter: 2014Q2

REPORT INFORMATION
  Report Type: Report from Study
  Country: US (occurrence: US)
  Receive Date: 20140424
  Receipt Date: 20140602
  Transmission Date: 20141212
  Serious: Yes (Hospitalization)
  Sender: FDA-Public Use
  Company Number: US-MPIJNJ-2014MPI001152

PATIENT
  Age: 75 Year
  Sex: Male

DRUGS (21)
  1. VELCADE [Suspect]
     Indication: PLASMA CELL MYELOMA
     Dosage: 3.3 MG, 1/WEEK
     Route: 042
     Dates: start: 20111012, end: 20120621
  2. DECADRON                           /00016001/ [Concomitant]
     Dosage: 10 MG, UNK
     Route: 042
  3. ALOXI [Concomitant]
     Dosage: 250 ?G, UNK
     Route: 042
  4. ASPIRIN [Concomitant]
     Dosage: 325 MG, QD
     Route: 048
  5. VITAMIN B12                        /00056201/ [Concomitant]
     Dosage: 1250 ?G, BID
  6. COREG [Concomitant]
     Indication: BLOOD PRESSURE
     Dosage: 50 MG, BID
  7. KLONOPIN [Concomitant]
     Indication: ANXIETY
     Dosage: 0.5 MG, BID
     Route: 048
  8. FENOFIBRATE [Concomitant]
     Indication: BLOOD CHOLESTEROL
     Dosage: 200 MG, QD
     Route: 048
  9. PROZAC [Concomitant]
     Indication: DEPRESSION
     Dosage: 20 MG, TID
     Route: 048
  10. LASIX                              /00032601/ [Concomitant]
     Dosage: 20 MG, QD
     Route: 048
  11. FOLVITE                            /00024201/ [Concomitant]
     Indication: SUPPLEMENTATION THERAPY
     Dosage: 1 MG, QD
     Route: 048
  12. IMDUR [Concomitant]
     Indication: BLOOD PRESSURE
     Dosage: 120 MG, QD
     Route: 048
  13. TRILEPTAL [Concomitant]
     Indication: CONVULSION
     Dosage: 600 MG, TID
     Route: 048
  14. ZOCOR [Concomitant]
     Indication: BLOOD CHOLESTEROL
     Dosage: 40 MG, QD
     Route: 048
  15. SYNTHROID [Concomitant]
     Dosage: 100 MG, QD
     Route: 048
  16. VITAMIN D                          /00107901/ [Concomitant]
     Indication: SUPPLEMENTATION THERAPY
     Dosage: 800 MG, QD
     Route: 048
  17. LYRICA [Concomitant]
     Indication: PAIN
     Dosage: 150 MG, BID
     Route: 048
  18. ZOFRAN                             /00955301/ [Concomitant]
     Indication: NAUSEA
     Dosage: 8 MG, UNK
     Route: 048
  19. LEVEMIR [Concomitant]
     Indication: BLOOD GLUCOSE ABNORMAL
     Dosage: 40 MG, UNK
  20. APIDRA [Concomitant]
  21. AMARYL [Concomitant]
     Dosage: 4 MG, BID
     Route: 048

REACTIONS (4)
  - Chest discomfort [Recovered/Resolved with Sequelae]
  - Gait disturbance [Recovered/Resolved with Sequelae]
  - Dyspnoea [Recovered/Resolved with Sequelae]
  - Oedema peripheral [Recovered/Resolved with Sequelae]
